FAERS Safety Report 14212021 (Version 1)
Quarter: 2017Q4

REPORT INFORMATION
  Report Type: Spontaneous
  Country: US (occurrence: US)
  Receive Date: 20171121
  Receipt Date: 20171121
  Transmission Date: 20180321
  Serious: Yes (Hospitalization)
  Sender: FDA-Public Use
  Company Number: US-LEADIANT BIOSCIENCES INC-2017STPI000449

PATIENT
  Sex: Female

DRUGS (5)
  1. CYSTARAN [Suspect]
     Active Substance: CYSTEAMINE HYDROCHLORIDE
     Indication: CORNEAL DEPOSITS
     Dosage: 1 GTT, QH
     Route: 047
     Dates: start: 20170509
  2. ARMOUR THYROID [Concomitant]
     Active Substance: THYROID, PORCINE
  3. CATAPRES                           /00171101/ [Concomitant]
     Active Substance: CLONIDINE
  4. METHYLDOPA. [Concomitant]
     Active Substance: METHYLDOPA
  5. SYNTHROID [Concomitant]
     Active Substance: LEVOTHYROXINE SODIUM

REACTIONS (1)
  - Hypertension [Recovered/Resolved]
